FAERS Safety Report 7629228-4 (Version None)
Quarter: 2011Q3

REPORT INFORMATION
  Report Type: 
  Country: None (occurrence: None)
  Receive Date: 20110715
  Receipt Date: 20110630
  Transmission Date: 20111222
  Serious: Yes (Other)
  Sender: FDA-Public Use
  Company Number: 2011MA008381

PATIENT
  Age: 52 Year
  Sex: Male

DRUGS (4)
  1. PERICIAZINE [Concomitant]
  2. LITHIUM CARBONATE [Concomitant]
  3. VENLAFAXINE HYDROCHLORIDE [Suspect]
     Indication: DEPRESSION
     Dosage: 375 MG, BUCC
     Route: 002
     Dates: start: 20110501
  4. LEVOTHYROXINE SODIUM [Concomitant]

REACTIONS (1)
  - ERECTION INCREASED [None]
